FAERS Safety Report 7577917-2 (Version None)
Quarter: 2011Q2

REPORT INFORMATION
  Report Type: 
  Country: None (occurrence: None)
  Receive Date: 20110628
  Receipt Date: 20110621
  Transmission Date: 20111010
  Serious: Yes (Hospitalization, Other)
  Sender: FDA-Public Use
  Company Number: PHEH2005US04218

PATIENT
  Sex: Female
  Weight: 54.421 kg

DRUGS (51)
  1. PREMARIN [Concomitant]
  2. PERCOCET [Concomitant]
  3. CHEMOTHERAPEUTICS NOS [Concomitant]
  4. DIPROLENE [Concomitant]
     Dosage: UNK, PRN
     Route: 061
  5. LIDOCAINE [Concomitant]
     Dosage: 100 MG, UNK
     Route: 042
  6. ADVAIR DISKUS 100/50 [Concomitant]
  7. GLEEVEC [Concomitant]
     Dosage: 500 MG, QD
     Route: 048
     Dates: start: 20040519
  8. EVISTA [Concomitant]
  9. DIPROLENE [Concomitant]
     Dosage: UNK
  10. LACTATED RINGER'S [Concomitant]
     Dosage: UNK
     Route: 042
     Dates: start: 20090619
  11. VECURONIUM BROMIDE [Concomitant]
     Dosage: UNK
     Dates: start: 20090619
  12. REMERON [Concomitant]
  13. TAPAZOLE [Concomitant]
  14. MORPHINE [Concomitant]
  15. METHIMAZOLE [Concomitant]
  16. OXYCODONE HCL [Concomitant]
  17. PENICILLIN ^GRUNENTHAL^ [Concomitant]
     Dosage: UNK
  18. AUGMENTIN '125' [Concomitant]
     Dosage: UNK
  19. FENTANYL CITRATE [Concomitant]
     Dosage: 100 MCG, UNK
     Dates: start: 20090619
  20. NEOSTIGMINE METHYLSULFATE [Concomitant]
  21. TOBRAMYCIN [Concomitant]
     Dosage: UNK
     Dates: start: 20090619
  22. CALCIUM CARBONATE [Concomitant]
     Dosage: 600 MG, QD
     Route: 048
  23. ZYRTEC [Concomitant]
     Dosage: 10 MG, QD
  24. PREDNISONE [Concomitant]
  25. MYCELEX [Concomitant]
     Dosage: UNK
  26. MIDAZOLAM HCL [Concomitant]
     Dosage: 2 MG,
  27. VITAMIN D [Concomitant]
     Dosage: 50000 IU, QMO
     Route: 048
  28. AREDIA [Suspect]
     Dosage: 90 MG, QMO
     Route: 042
     Dates: start: 20030601, end: 20040501
  29. RANITIDINE [Concomitant]
     Dosage: 150 MG, UNK
  30. OXYCONTIN [Concomitant]
  31. VALIUM [Concomitant]
  32. COUMADIN [Concomitant]
     Dosage: UNK
  33. PROAIR (FLUTICASONE PROPIONATE) [Concomitant]
     Dosage: UNK
  34. AREDIA [Suspect]
     Indication: MULTIPLE MYELOMA
     Dosage: 30 MG, UNK
     Route: 042
     Dates: start: 20011101, end: 20030701
  35. SINGULAIR [Concomitant]
     Dosage: 10 MG, QD
  36. VANCOMYCIN [Concomitant]
  37. ALBUTEROL SULFATE AUTOHALER [Concomitant]
     Dosage: UNK
  38. METOPROLOL TARTRATE [Concomitant]
     Dosage: UNK
  39. BRONCHODILATORS [Concomitant]
     Dosage: UNK
  40. ETOMIDATE [Concomitant]
     Dosage: 40MG, UNK
     Route: 042
     Dates: start: 20090619
  41. GLYCOPYRROLATE [Concomitant]
     Dosage: 0.2MG/ML, UNK
  42. PRILOSEC [Concomitant]
     Dosage: 20 MG, QD
     Route: 048
  43. AREDIA [Suspect]
     Indication: MASTOCYTOSIS
     Dosage: 90 MG, QMO
     Route: 042
     Dates: start: 20011116, end: 20030401
  44. ZOMETA [Suspect]
     Dosage: UNK
     Dates: end: 20051101
  45. BENADRYL ^PFIZER WARNER-LAMBERT^ [Concomitant]
     Dates: start: 19910101
  46. ZANTAC [Concomitant]
     Dosage: UNK
  47. CIPRO [Concomitant]
  48. CLOTRIMAZOLE [Concomitant]
  49. TYLENOL-500 [Concomitant]
     Dosage: 625 MG,
     Route: 048
     Dates: start: 20090619
  50. HYDROCORTISONE SODIUM PHOSPHATE [Concomitant]
     Dosage: 1350MG, UNK
     Dates: start: 20090619
  51. METHYLPREDNISOLONE [Concomitant]
     Dosage: 150MG,
     Dates: start: 20090619

REACTIONS (69)
  - BONE DISORDER [None]
  - LYMPHOMA [None]
  - DISORDER OF ORBIT [None]
  - OSTEOPENIA [None]
  - NASAL SEPTUM DEVIATION [None]
  - DENTURE WEARER [None]
  - WHITE BLOOD CELL COUNT INCREASED [None]
  - COMPRESSION FRACTURE [None]
  - ORAL FUNGAL INFECTION [None]
  - SPINAL OSTEOARTHRITIS [None]
  - ESSENTIAL HYPERTENSION [None]
  - HYPOAESTHESIA [None]
  - OSTEOMYELITIS [None]
  - PALATAL OEDEMA [None]
  - PALATAL DISORDER [None]
  - CONDITION AGGRAVATED [None]
  - OSTEOARTHRITIS [None]
  - BONE SCAN ABNORMAL [None]
  - HYPERGLYCAEMIA [None]
  - HYPERTHYROIDISM [None]
  - FIBROCYSTIC BREAST DISEASE [None]
  - BREAST MASS [None]
  - AORTIC ANEURYSM [None]
  - GINGIVAL EROSION [None]
  - OSTEOPOROSIS [None]
  - JAW DISORDER [None]
  - PRURITUS [None]
  - GOITRE [None]
  - DERMATITIS CONTACT [None]
  - OSTEONECROSIS OF JAW [None]
  - WEIGHT DECREASED [None]
  - MOUTH ULCERATION [None]
  - SWOLLEN TONGUE [None]
  - SWELLING [None]
  - MASTOCYTOSIS [None]
  - TOOTH DISORDER [None]
  - SCOLIOSIS [None]
  - BASEDOW'S DISEASE [None]
  - EXOPHTHALMOS [None]
  - DYSPNOEA [None]
  - ESCHERICHIA INFECTION [None]
  - ORAL DISORDER [None]
  - ORAL PAIN [None]
  - PERIODONTAL DISEASE [None]
  - SINUSITIS [None]
  - SKIN LESION [None]
  - BRONCHITIS [None]
  - DIARRHOEA [None]
  - WHEEZING [None]
  - ECZEMA [None]
  - RASH [None]
  - CANDIDIASIS [None]
  - ENDOCRINE OPHTHALMOPATHY [None]
  - ASTHMA [None]
  - INFECTION [None]
  - METASTASIS [None]
  - DIPLOPIA [None]
  - ORAL PRURITUS [None]
  - MASS [None]
  - PULMONARY CONGESTION [None]
  - HEPATIC CYST [None]
  - OROANTRAL FISTULA [None]
  - GINGIVAL SWELLING [None]
  - ASTROCYTOMA [None]
  - COMPUTERISED TOMOGRAM ABNORMAL [None]
  - JAW FRACTURE [None]
  - ULCER [None]
  - CARDIAC ARREST [None]
  - COUGH [None]
